FAERS Safety Report 4651870-3 (Version None)
Quarter: 2005Q2

REPORT INFORMATION
  Report Type: 
  Country: None (occurrence: None)
  Receive Date: 20050504
  Receipt Date: 20041209
  Transmission Date: 20051028
  Serious: Yes (Death, Hospitalization)
  Sender: FDA-Public Use
  Company Number: KE-GLAXOSMITHKLINE-B0360516A

PATIENT
  Age: 22 Year
  Sex: Female
  Weight: 66.9 kg

DRUGS (9)
  1. COMBIVIR [Suspect]
     Indication: ANTIVIRAL PROPHYLAXIS
     Dosage: 1TAB TWICE PER DAY
     Route: 048
     Dates: start: 20040622, end: 20050204
  2. NEVIRAPINE [Suspect]
     Indication: ANTIVIRAL PROPHYLAXIS
     Dosage: 200MG SEE DOSAGE TEXT
     Route: 048
     Dates: start: 20040622, end: 20040701
  3. NELFINAVIR [Suspect]
     Indication: ANTIVIRAL PROPHYLAXIS
     Dosage: 1TAB TWICE PER DAY
     Route: 048
     Dates: start: 20040702, end: 20050204
  4. RIFAMPICIN [Concomitant]
     Indication: TUBERCULOSIS
     Dates: start: 20040702
  5. ISONIAZID [Concomitant]
     Indication: TUBERCULOSIS
     Dates: start: 20040702
  6. PYRAZINAMIDE [Concomitant]
     Indication: TUBERCULOSIS
     Dates: start: 20040702
  7. ETHAMBUTOL HCL [Concomitant]
     Indication: TUBERCULOSIS
     Dates: start: 20040702
  8. IRON SALT [Concomitant]
  9. FOLIC ACID [Concomitant]

REACTIONS (16)
  - BREATH SOUNDS DECREASED [None]
  - CARDIAC FAILURE CONGESTIVE [None]
  - CARDIOMYOPATHY [None]
  - COUGH [None]
  - DYSPNOEA [None]
  - FATIGUE [None]
  - HEPATIC CONGESTION [None]
  - HEPATIC ENZYME INCREASED [None]
  - HEPATOMEGALY [None]
  - MITOCHONDRIAL CYTOPATHY [None]
  - OEDEMA PERIPHERAL [None]
  - ORTHOPNOEA [None]
  - PALLOR [None]
  - PITTING OEDEMA [None]
  - SPLENOMEGALY [None]
  - TACHYPNOEA [None]
